FAERS Safety Report 11718836 (Version 2)
Quarter: 2015Q4

REPORT INFORMATION
  Report Type: Spontaneous
  Country: CN (occurrence: CN)
  Receive Date: 20151110
  Receipt Date: 20151201
  Transmission Date: 20160304
  Serious: Yes (Death, Other)
  Sender: FDA-Public Use
  Company Number: CN-PFIZER INC-2015366811

PATIENT
  Age: 48 Year
  Sex: Female

DRUGS (1)
  1. SUTENT [Suspect]
     Active Substance: SUNITINIB MALATE
     Indication: GASTROINTESTINAL STROMAL TUMOUR
     Dosage: UNK

REACTIONS (2)
  - Ascites [Unknown]
  - Death [Fatal]

NARRATIVE: CASE EVENT DATE: 20151029
